FAERS Safety Report 4300707-0 (Version None)
Quarter: 2004Q1

REPORT INFORMATION
  Report Type: 
  Country: None (occurrence: None)
  Receive Date: 20040218
  Receipt Date: 20040203
  Transmission Date: 20041129
  Serious: Yes (Hospitalization)
  Sender: FDA-Public Use
  Company Number: US_0402100370

PATIENT
  Age: 22 Year
  Sex: Female
  Weight: 69 kg

DRUGS (9)
  1. ZYPREXA [Suspect]
     Indication: ACUTE PSYCHOSIS
     Dosage: 20 MG/ 1 AT BEDTIME
  2. ZYPREXA [Suspect]
     Indication: BIPOLAR DISORDER
     Dosage: 20 MG/ 1 AT BEDTIME
  3. ATIVAN [Concomitant]
  4. PRENATAL VITAMINS [Concomitant]
  5. NICORETTE GUM (NICOTINE RESIN) [Concomitant]
  6. ENSURE [Concomitant]
  7. COLACE (DOCUSATE SODIUM) [Concomitant]
  8. NEURONTIN [Concomitant]
  9. SEROQUEL [Concomitant]

REACTIONS (11)
  - ABDOMINAL PAIN [None]
  - ACUTE PSYCHOSIS [None]
  - CAESAREAN SECTION [None]
  - COMPLICATIONS OF MATERNAL EXPOSURE TO THERAPEUTIC DRUGS [None]
  - HYPERTELORISM OF ORBIT [None]
  - INTRA-UTERINE DEATH [None]
  - MATERNAL DRUGS AFFECTING FOETUS [None]
  - PLACENTAL INSUFFICIENCY [None]
  - SMEAR CERVIX ABNORMAL [None]
  - TRISOMY 21 [None]
  - UMBILICAL CORD SHORT [None]
